FAERS Safety Report 6674341-1 (Version None)
Quarter: 2010Q2

REPORT INFORMATION
  Report Type: 
  Country: None (occurrence: None)
  Receive Date: 20100409
  Receipt Date: 20100402
  Transmission Date: 20101027
  Serious: Yes (Other)
  Sender: FDA-Public Use
  Company Number: CHPA2010US06170

PATIENT
  Age: 53 Year
  Sex: Female

DRUGS (3)
  1. THERAFLU NIGHTTIME SEVERE COLD + COUGH (NCH) [Suspect]
     Indication: INFLUENZA
     Dosage: 1 DF, QD
     Route: 048
     Dates: start: 20100305, end: 20100305
  2. CETIRIZINE HCL [Concomitant]
     Indication: SNEEZING
     Dosage: UNK, UNK
  3. SYNTHROID [Concomitant]
     Indication: HYPOTHYROIDISM
     Dosage: UNK, UNK

REACTIONS (8)
  - EPISTAXIS [None]
  - ERYTHEMA [None]
  - HYPERSENSITIVITY [None]
  - NASAL OEDEMA [None]
  - PERIORBITAL OEDEMA [None]
  - SKIN DISCOLOURATION [None]
  - SKIN EXFOLIATION [None]
  - SWELLING FACE [None]
